FAERS Safety Report 15463169 (Version 2)
Quarter: 2018Q4

REPORT INFORMATION
  Report Type: Spontaneous
  Country: JP (occurrence: JP)
  Receive Date: 20181004
  Receipt Date: 20181004
  Transmission Date: 20190204
  Serious: Yes (Other)
  Sender: FDA-Public Use
  Company Number: JP-TEVA-2017-JP-004382J

PATIENT
  Age: 9 Decade
  Sex: Male

DRUGS (7)
  1. BAYASPIRIN [Concomitant]
     Active Substance: ASPIRIN
     Route: 048
  2. ACTOS [Suspect]
     Active Substance: PIOGLITAZONE HYDROCHLORIDE
     Indication: PRODUCT USED FOR UNKNOWN INDICATION
     Dosage: 15 MILLIGRAM DAILY;
     Route: 048
     Dates: end: 201509
  3. REMINYL [Concomitant]
     Active Substance: GALANTAMINE
     Route: 048
  4. YOKUKANSAN [Concomitant]
     Active Substance: HERBALS
     Route: 048
  5. MEVALOTIN [Concomitant]
     Active Substance: PRAVASTATIN SODIUM
     Route: 048
  6. HERBESSER [Concomitant]
     Active Substance: DILTIAZEM HYDROCHLORIDE
     Route: 048
  7. HONZO SHOSEIRYUTO EXTRACT GRANULES-M [Concomitant]
     Route: 048

REACTIONS (2)
  - Bladder cancer [Recovering/Resolving]
  - Ureteric cancer [Recovering/Resolving]

NARRATIVE: CASE EVENT DATE: 201509
